FAERS Safety Report 13312085 (Version 4)
Quarter: 2017Q2

REPORT INFORMATION
  Report Type: Spontaneous
  Country: FR (occurrence: FR)
  Receive Date: 20170309
  Receipt Date: 20170613
  Transmission Date: 20170830
  Serious: Yes (Other)
  Sender: FDA-Public Use
  Company Number: FR-TEVA-747378ROM

PATIENT
  Age: 66 Year
  Sex: Male

DRUGS (15)
  1. ALDACTONE 50 MG [Concomitant]
     Dates: start: 20170222
  2. LANTUS 100 UI/ML [Concomitant]
     Dates: start: 20170209
  3. UVEDOSE [Concomitant]
     Active Substance: CHOLECALCIFEROL
     Dates: start: 20170120
  4. SERESTA [Concomitant]
     Active Substance: OXAZEPAM
  5. FOLIC ACID 5 MG [Concomitant]
     Dates: start: 20170127
  6. HEMOCLAR [Concomitant]
     Dates: start: 20170130
  7. AMLODIPINE ARROW CAPSULE [Concomitant]
     Dates: start: 20170120
  8. HUMALOG [Concomitant]
     Active Substance: INSULIN LISPRO
     Dates: start: 20170212
  9. NORFLOXACIN ARROW  400 MG [Suspect]
     Active Substance: NORFLOXACIN
     Indication: INFECTION PROPHYLAXIS
     Dosage: 1 DOSAGE FORMS DAILY;
     Route: 048
     Dates: start: 20170128
  10. PRINCI B [Concomitant]
     Active Substance: PYRIDOXINE\THIAMINE
  11. DUPHALAC [Concomitant]
     Active Substance: LACTULOSE
     Dates: start: 20170128
  12. QUESTRAN POWDER 4 G [Concomitant]
     Dates: start: 20170223
  13. PANTOPRAZOLE ARROW 40 MG GASTRO-RESISTANT TABLET [Suspect]
     Active Substance: PANTOPRAZOLE SODIUM
     Indication: VARICES OESOPHAGEAL
     Dosage: 1 DOSAGE FORMS DAILY;
     Route: 048
     Dates: start: 20170119
  14. LASILIX TABLET 40 MG [Concomitant]
     Active Substance: FUROSEMIDE
     Dates: start: 20170203, end: 20170204
  15. INNOHEP 10000 IU/L [Concomitant]
     Dates: start: 20170216

REACTIONS (2)
  - Platelet count decreased [Not Recovered/Not Resolved]
  - Haemolytic anaemia [Not Recovered/Not Resolved]

NARRATIVE: CASE EVENT DATE: 20170130
